FAERS Safety Report 17816714 (Version 2)
Quarter: 2020Q2

REPORT INFORMATION
  Report Type: Spontaneous
  Country: DE (occurrence: DE)
  Receive Date: 20200522
  Receipt Date: 20200616
  Transmission Date: 20200714
  Serious: Yes (Life-Threatening, Other)
  Sender: FDA-Public Use
  Company Number: DE-PFIZER INC-2020202443

PATIENT
  Age: 31 Year
  Sex: Female
  Weight: 63 kg

DRUGS (2)
  1. CYTOTEC [Suspect]
     Active Substance: MISOPROSTOL
     Indication: LABOUR INDUCTION
     Dosage: 100 UG (50 UG EACH AT 11:20 A.M. AND 4:00 P.M.)
     Route: 048
     Dates: start: 20171219
  2. CYTOTEC [Suspect]
     Active Substance: MISOPROSTOL
     Indication: PRETERM PREMATURE RUPTURE OF MEMBRANES
     Dosage: 200 UG (100 UG EACH AT 11:40 A.M. AND 4:24 P.M.)
     Route: 048
     Dates: start: 20171220

REACTIONS (6)
  - Arterial haemorrhage [Recovered/Resolved]
  - Arterial injury [Unknown]
  - Off label use [Unknown]
  - Uterine tachysystole [Unknown]
  - Uterine rupture [Recovered/Resolved]
  - Product use in unapproved indication [Unknown]

NARRATIVE: CASE EVENT DATE: 20171219
